FAERS Safety Report 7919772-4 (Version None)
Quarter: 2011Q4

REPORT INFORMATION
  Report Type: 
  Country: None (occurrence: None)
  Receive Date: 20111117
  Receipt Date: 20111107
  Transmission Date: 20120403
  Serious: Yes (Other)
  Sender: FDA-Public Use
  Company Number: BE-JNJFOC-20111103400

PATIENT
  Age: 49 Year
  Sex: Male

DRUGS (1)
  1. REMICADE [Suspect]
     Indication: SPONDYLOARTHROPATHY
     Route: 042
     Dates: start: 20060101

REACTIONS (2)
  - NON-SMALL CELL LUNG CANCER [None]
  - LOWER RESPIRATORY TRACT INFECTION [None]
